FAERS Safety Report 8333099-0 (Version None)
Quarter: 2012Q2

REPORT INFORMATION
  Report Type: 
  Country: None (occurrence: None)
  Receive Date: 20120503
  Receipt Date: 20120501
  Transmission Date: 20120825
  Serious: Yes (Other)
  Sender: FDA-Public Use
  Company Number: PHEH2012US009189

PATIENT
  Sex: Female

DRUGS (16)
  1. MYCOPHENOLATE MOFETIL (CELLCEPT) [Concomitant]
  2. FLAGYL [Concomitant]
  3. PROMETHAZINE [Concomitant]
  4. BENADRYL [Concomitant]
  5. CLONIDINE [Concomitant]
  6. LOPRESSOR [Concomitant]
  7. FOSAMAX [Concomitant]
  8. LASIX [Concomitant]
  9. RANITIDINE [Concomitant]
  10. ZOCOR [Concomitant]
  11. NEORAL [Suspect]
     Dosage: 50 MG, BID
     Route: 048
  12. ASPIRIN [Concomitant]
  13. POTASSIUM CHLORIDE [Concomitant]
  14. PREDNISONE [Concomitant]
  15. EXTRA STRENGTH TYLENOL [Concomitant]
  16. TRAZODONE HCL [Concomitant]

REACTIONS (1)
  - FISTULA [None]
